FAERS Safety Report 14482009 (Version 1)
Quarter: 2018Q1

REPORT INFORMATION
  Report Type: Spontaneous
  Country: IT (occurrence: IT)
  Receive Date: 20180202
  Receipt Date: 20180202
  Transmission Date: 20180509
  Serious: Yes (Other)
  Sender: FDA-Public Use
  Company Number: IT-TEVA-2018-IT-851580

PATIENT
  Age: 86 Year
  Sex: Male

DRUGS (3)
  1. TAMSULOSINA ALMUS 0,4 MG CAPSULE RIGIDE A RILASCIO MODIFICATO [Concomitant]
     Route: 048
  2. AVODART 0,5 MG CAPSULE MOLLI [Concomitant]
     Route: 048
  3. SERTRALINA ACTAVIS [Suspect]
     Active Substance: SERTRALINE HYDROCHLORIDE
     Route: 048

REACTIONS (1)
  - Poisoning [Recovering/Resolving]

NARRATIVE: CASE EVENT DATE: 20170817
